FAERS Safety Report 8432950 (Version 3)
Quarter: 2013Q2

REPORT INFORMATION
  Report Type: Report from Study
  Country: JP (occurrence: JP)
  Receive Date: 20120229
  Receipt Date: 20130426
  Transmission Date: 20140414
  Serious: Yes (Disabling, Other)
  Sender: FDA-Public Use
  Company Number: JP-PFIZER INC-2012042532

PATIENT
  Age: 62 Year
  Sex: Male
  Weight: 74.4 kg

DRUGS (8)
  1. TEMSIROLIMUS [Suspect]
     Indication: METASTATIC RENAL CELL CARCINOMA
     Dosage: 25 MG, WEEKLY
     Route: 042
     Dates: start: 20111004, end: 20111221
  2. ALLEGRA [Concomitant]
     Indication: PROPHYLAXIS
     Dosage: 60 MG, WEEKLY
     Route: 048
     Dates: start: 20111004
  3. SLOW-K [Concomitant]
     Dosage: 600 MG, 3 TABLET, 3X/DAY
     Dates: start: 20111130
  4. NU LOTAN [Concomitant]
     Dosage: 50 MG, 1X/DAY
     Route: 048
     Dates: start: 20111102
  5. URSO [Concomitant]
     Dosage: 600 MG, UNK
     Dates: start: 20111102
  6. PROHEPARUM [Concomitant]
     Dosage: 6 DF, UNK
     Route: 048
     Dates: start: 20111102
  7. URIEF [Concomitant]
     Dosage: 8 MG, UNK
     Route: 048
     Dates: start: 20111102
  8. AVOLVE [Concomitant]
     Dosage: 0.5 MG, 1X/DAY
     Dates: start: 20111102

REACTIONS (3)
  - Interstitial lung disease [Recovering/Resolving]
  - Hypokalaemia [Recovering/Resolving]
  - Hyperglycaemia [Recovering/Resolving]
